FAERS Safety Report 8776332 (Version 1)
Quarter: 2012Q4

REPORT INFORMATION
  Report Type: 
  Country: US (occurrence: US)
  Receive Date: 20120910
  Receipt Date: 20120910
  Transmission Date: 20130627
  Serious: Yes (Other)
  Sender: FDA-Public Use
  Company Number: US-PFIZER INC-2012221056

PATIENT
  Age: 78 Year
  Sex: Female
  Weight: 55.78 kg

DRUGS (3)
  1. NEURONTIN [Suspect]
     Indication: PAIN IN EXTREMITY
     Dosage: UNK
  2. XALATAN [Suspect]
     Indication: INTRAOCULAR PRESSURE TEST ABNORMAL
     Dosage: one drop in each eye daily
     Route: 047
  3. COUMADIN [Suspect]
     Dosage: UNK

REACTIONS (1)
  - Haematoma [Recovered/Resolved]
